FAERS Safety Report 14638242 (Version 1)
Quarter: 2018Q1

REPORT INFORMATION
  Report Type: Spontaneous
  Country: US (occurrence: US)
  Receive Date: 20180314
  Receipt Date: 20180314
  Transmission Date: 20180509
  Serious: No
  Sender: FDA-Public Use
  Company Number: None

PATIENT
  Sex: Male

DRUGS (2)
  1. ALLOPURINOL 300 [Suspect]
     Active Substance: ALLOPURINOL
  2. INDOMETHACIN 50 MG CAPS [Suspect]
     Active Substance: INDOMETHACIN

REACTIONS (1)
  - Drug ineffective [None]
